FAERS Safety Report 7781962-1 (Version None)
Quarter: 2011Q3

REPORT INFORMATION
  Report Type: 
  Country: None (occurrence: None)
  Receive Date: 20110927
  Receipt Date: 20110914
  Transmission Date: 20111222
  Serious: Yes (Other)
  Sender: FDA-Public Use
  Company Number: PHHY2011US14647

PATIENT
  Sex: Male

DRUGS (2)
  1. METFORMIN HCL [Concomitant]
     Dosage: UNK UKN, UNK
  2. GILENYA [Suspect]
     Indication: MULTIPLE SCLEROSIS
     Dosage: 0.5 MG, QD
     Route: 048
     Dates: start: 20110201

REACTIONS (6)
  - EYE SWELLING [None]
  - DIABETES MELLITUS [None]
  - VISION BLURRED [None]
  - BLINDNESS UNILATERAL [None]
  - HEPATIC ENZYME INCREASED [None]
  - DRUG INEFFECTIVE [None]
